FAERS Safety Report 7334388-9 (Version None)
Quarter: 2011Q1

REPORT INFORMATION
  Report Type: 
  Country: None (occurrence: None)
  Receive Date: 20110307
  Receipt Date: 20110222
  Transmission Date: 20110831
  Serious: Yes (Other)
  Sender: FDA-Public Use
  Company Number: PHHY2011PH11128

PATIENT

DRUGS (6)
  1. ANGIOTENSIN II ANTAGONISTS [Suspect]
     Dosage: UNK
  2. DIURETICS [Suspect]
     Dosage: UNK
  3. BETA BLOCKING AGENTS [Suspect]
     Dosage: UNK
  4. RASILEZ HCT [Suspect]
     Indication: HYPERTENSION
     Dosage: UNK
  5. CALCIUM CHANNEL BLOCKERS [Suspect]
     Dosage: UNK
  6. CLONIDINE [Concomitant]
     Dosage: UNK

REACTIONS (1)
  - CEREBROVASCULAR ACCIDENT [None]
